FAERS Safety Report 6763413-9 (Version None)
Quarter: 2010Q2

REPORT INFORMATION
  Report Type: 
  Country: None (occurrence: None)
  Receive Date: 20100610
  Receipt Date: 20090108
  Transmission Date: 20101027
  Serious: Yes (Other)
  Sender: FDA-Public Use
  Company Number: HR-BAYER-201025569GPV

PATIENT
  Sex: Male

DRUGS (1)
  1. BETAFERON [Suspect]
     Indication: MULTIPLE SCLEROSIS
     Route: 058
     Dates: start: 20080714

REACTIONS (7)
  - APPLICATION SITE SCAB [None]
  - CONTUSION [None]
  - HAEMATOMA [None]
  - LOWER EXTREMITY MASS [None]
  - SCAR [None]
  - SKIN NECROSIS [None]
  - SKIN REACTION [None]
